FAERS Safety Report 9972783 (Version 1)
Quarter: 2014Q1

REPORT INFORMATION
  Report Type: Spontaneous
  Country: CM (occurrence: CM)
  Receive Date: 20140306
  Receipt Date: 20140306
  Transmission Date: 20141002
  Serious: Yes (Hospitalization)
  Sender: FDA-Public Use
  Company Number: CM-009507513-1403CMR001835

PATIENT
  Age: 51 Year
  Sex: Male
  Weight: 64 kg

DRUGS (4)
  1. MECTIZAN [Suspect]
     Indication: FILARIASIS LYMPHATIC
     Dosage: 4 DF, UNK
     Route: 048
     Dates: start: 20130701
  2. MECTIZAN [Suspect]
     Dosage: RECEIVED 2 DOSES IN THE PAST
  3. ALBENDAZOLE [Suspect]
     Indication: FILARIASIS LYMPHATIC
     Dosage: 1 DF, UNK
     Route: 048
     Dates: start: 20130701
  4. ALBENDAZOLE [Suspect]
     Dosage: RECIEVED 2 DOSES IN THE PAST

REACTIONS (4)
  - Headache [Recovered/Resolved]
  - Vision blurred [Recovered/Resolved]
  - Conjunctival haemorrhage [Recovered/Resolved]
  - Asthenia [Recovered/Resolved]
